FAERS Safety Report 9289439 (Version 1)
Quarter: 2013Q2

REPORT INFORMATION
  Report Type: Spontaneous
  Country: US (occurrence: US)
  Receive Date: 20130514
  Receipt Date: 20130514
  Transmission Date: 20140414
  Serious: Yes (Death)
  Sender: FDA-Public Use
  Company Number: US-PFIZER INC-2013146370

PATIENT
  Age: 78 Year
  Sex: Female

DRUGS (3)
  1. REVATIO [Suspect]
     Indication: PULMONARY HYPERTENSION
     Dosage: 20 MG, 3X/DAY
     Dates: start: 20130211, end: 20130217
  2. REVATIO [Suspect]
     Indication: RENAL FAILURE CHRONIC
  3. REVATIO [Suspect]
     Indication: BLADDER DISORDER

REACTIONS (1)
  - Renal failure [Fatal]
